FAERS Safety Report 6823349-1 (Version None)
Quarter: 2010Q3

REPORT INFORMATION
  Report Type: 
  Country: None (occurrence: None)
  Receive Date: 20100708
  Receipt Date: 20100707
  Transmission Date: 20110219
  Serious: Yes (Hospitalization, Other)
  Sender: FDA-Public Use
  Company Number: CH-ROXANE LABORATORIES, INC.-2010-RO-00802RO

PATIENT
  Age: 52 Year
  Sex: Female

DRUGS (9)
  1. MORPHINE [Suspect]
     Indication: BACK PAIN
     Dosage: 6 MG
     Route: 037
     Dates: start: 20050801
  2. MORPHINE [Suspect]
     Route: 037
  3. MORPHINE [Suspect]
     Dosage: 7 MG
  4. HYDROMORPHONE [Suspect]
     Indication: BACK PAIN
     Dosage: 2.5 MG
     Route: 037
  5. HYDROMORPHONE [Suspect]
     Dosage: 5.2 MG
     Route: 037
  6. ZICONITIDE [Suspect]
     Indication: BACK PAIN
     Dosage: 4 MCG
     Route: 037
     Dates: start: 20070701
  7. ZICONITIDE [Suspect]
     Dosage: 9.6 MCG
     Route: 037
  8. OXYCODONE HCL [Suspect]
     Indication: BACK PAIN
     Route: 048
  9. SODIUM CHLORIDE [Suspect]
     Route: 037

REACTIONS (7)
  - CAUDA EQUINA SYNDROME [None]
  - CHEST PAIN [None]
  - INFUSION SITE MASS [None]
  - MEDICAL DEVICE COMPLICATION [None]
  - PAIN [None]
  - QUALITY OF LIFE DECREASED [None]
  - RESTLESSNESS [None]
